FAERS Safety Report 16973932 (Version 1)
Quarter: 2019Q4

REPORT INFORMATION
  Report Type: Spontaneous
  Country: NL (occurrence: NL)
  Receive Date: 20191030
  Receipt Date: 20191030
  Transmission Date: 20200122
  Serious: Yes (Life-Threatening, Hospitalization)
  Sender: FDA-Public Use
  Company Number: NL-ACCORD-159373

PATIENT
  Age: 88 Year
  Sex: Female
  Weight: 55 kg

DRUGS (6)
  1. CALCIUM CARBONATE/COLECALCIFEROL [Concomitant]
     Dosage: STRENGTH: 500MG/800IE
  2. CLOPIDOGREL [Suspect]
     Active Substance: CLOPIDOGREL BISULFATE
     Indication: ANGIOPLASTY
     Dosage: STRENGTH: 75 MG, PATIENT DID NOT RESTART TAKING MEDICINE AFTER STOPPING
     Dates: start: 20190903, end: 20190909
  3. CLOPIDOGREL [Suspect]
     Active Substance: CLOPIDOGREL BISULFATE
     Indication: PERIPHERAL VASCULAR DISORDER
     Dosage: STRENGTH: 75 MG, PATIENT DID NOT RESTART TAKING MEDICINE AFTER STOPPING
     Dates: start: 20190903, end: 20190909
  4. THYRAX [Concomitant]
     Active Substance: LEVOTHYROXINE
     Dosage: 1DD 75MCG
  5. METOPROLOL. [Concomitant]
     Active Substance: METOPROLOL
     Dosage: STRENGTH: 100MG 1DD, METOPROLOL RET
  6. LISINOPRIL. [Suspect]
     Active Substance: LISINOPRIL
     Indication: PRODUCT USED FOR UNKNOWN INDICATION
     Dosage: STRENGTH: 5 MG, 1X PER DAY 1 PIECE
     Dates: start: 2014, end: 20190909

REACTIONS (2)
  - Respiratory distress [Recovered/Resolved]
  - Tongue oedema [Recovered/Resolved]

NARRATIVE: CASE EVENT DATE: 20190908
